FAERS Safety Report 4366883-9 (Version None)
Quarter: 2004Q2

REPORT INFORMATION
  Report Type: 
  Country: None (occurrence: None)
  Receive Date: 20040524
  Receipt Date: 20040507
  Transmission Date: 20050107
  Serious: No
  Sender: FDA-Public Use
  Company Number: CEL-2004-00781-ROC

PATIENT
  Age: 3 Year
  Sex: Female

DRUGS (1)
  1. DELSYM [Suspect]
     Dosage: 1/2 BOTTLE, ONCE, PO
     Route: 048
     Dates: start: 20040508, end: 20040508

REACTIONS (2)
  - ACCIDENTAL OVERDOSE [None]
  - HEADACHE [None]
